FAERS Safety Report 18878526 (Version 1)
Quarter: 2021Q1

REPORT INFORMATION
  Report Type: Spontaneous
  Country: US (occurrence: US)
  Receive Date: 20210210
  Receipt Date: 20210210
  Transmission Date: 20210420
  Serious: Yes (Death)
  Sender: FDA-Public Use
  Company Number: None

PATIENT
  Sex: Male

DRUGS (25)
  1. METOPROL SUC CER [Concomitant]
  2. NONRHEUMATIC MITRAL (VALVE) INSUFFICIENCY [Concomitant]
  3. SEC AND UNSP MALIG NEOPLASM OF AXILLA AND UPPER UMB NODES [Concomitant]
  4. UNSPECIFIED VIRAL HEPATITIS C WITHOUT HEPATIC COMA [Concomitant]
  5. URINARY TRACT INFECTION [Concomitant]
  6. NYSTATIN. [Concomitant]
     Active Substance: NYSTATIN
  7. EVEROLIMUS. [Suspect]
     Active Substance: EVEROLIMUS
     Indication: RENAL CANCER
     Route: 048
     Dates: start: 20201221
  8. LEVOTHYROXIN [Concomitant]
     Active Substance: LEVOTHYROXINE
  9. GUTTATE PSORIASIS [Concomitant]
  10. GABAPENTIN. [Concomitant]
     Active Substance: GABAPENTIN
  11. GASTRO ESOPHAGEAL REFLUX DISEASE WITHOUT ESOPHAGITIS [Concomitant]
  12. INSOMINIA [Concomitant]
  13. PREDNISONE. [Concomitant]
     Active Substance: PREDNISONE
  14. DEXAMETHASON [Concomitant]
     Active Substance: DEXAMETHASONE
  15. SITE NOT SPECIFIED [Concomitant]
  16. HEPATITIS C [Concomitant]
  17. SECONDARY MALIGNANT NEOPLASM OF BONE [Concomitant]
  18. UNSPECIFIED SEVERE PROTEIN CALORIE MALNUTRITION [Concomitant]
  19. OXYCODONE [Concomitant]
     Active Substance: OXYCODONE
  20. HEART FAILURE [Concomitant]
  21. MUPIROCIN. [Concomitant]
     Active Substance: MUPIROCIN
  22. ONDANSETRON [Concomitant]
     Active Substance: ONDANSETRON
  23. HYDROMORPHON [Concomitant]
     Active Substance: HYDROMORPHONE
  24. CHRONIC VIRAL [Concomitant]
  25. NONRHEUMATOIC TRICUSPID (VALVE) INSUFFICIENCY [Concomitant]

REACTIONS (1)
  - Death [None]
